FAERS Safety Report 5441567-4 (Version None)
Quarter: 2007Q3

REPORT INFORMATION
  Report Type: 
  Country: None (occurrence: None)
  Receive Date: 20070829
  Receipt Date: 20070829
  Transmission Date: 20080115
  Serious: Yes (Other)
  Sender: FDA-Public Use
  Company Number: None

PATIENT
  Age: 46 Year
  Sex: Female
  Weight: 109.3169 kg

DRUGS (1)
  1. DURAGESIC-75 [Suspect]
     Dosage: 72 HOURS

REACTIONS (3)
  - DRUG INEFFECTIVE [None]
  - HYPERAESTHESIA [None]
  - PHARMACEUTICAL PRODUCT COMPLAINT [None]
